FAERS Safety Report 24292314 (Version 1)
Quarter: 2024Q3

REPORT INFORMATION
  Report Type: Spontaneous
  Country: FR (occurrence: FR)
  Receive Date: 20240906
  Receipt Date: 20240906
  Transmission Date: 20241017
  Serious: Yes (Other)
  Sender: ROCHE
  Company Number: None

PATIENT
  Age: 46 Year
  Sex: Male
  Weight: 69 kg

DRUGS (4)
  1. XOLAIR [Suspect]
     Active Substance: OMALIZUMAB
     Indication: Urticaria chronic
     Dosage: 300 MG, QMO (300 MG EN INJECTION SC TOUS LES 28 JOURS)
     Route: 050
     Dates: start: 20210901
  2. HYDROCHLOROTHIAZIDE [Suspect]
     Active Substance: HYDROCHLOROTHIAZIDE
     Indication: Hypertension
     Dosage: 12.5 MG, QD (12.5 MG/J)
     Route: 050
     Dates: start: 20210101
  3. RAMIPRIL [Suspect]
     Active Substance: RAMIPRIL
     Indication: Hypertension
     Dosage: 5 MG, QD (5 MG/J)
     Route: 050
     Dates: start: 20210101
  4. MONTELUKAST SODIUM [Suspect]
     Active Substance: MONTELUKAST\MONTELUKAST SODIUM
     Indication: Urticaria chronic
     Dosage: 10 MG, QD (PAR JOURS)
     Route: 050
     Dates: start: 20210901

REACTIONS (4)
  - Vomiting [Not Recovered/Not Resolved]
  - Intestinal villi atrophy [Not Recovered/Not Resolved]
  - Diarrhoea [Not Recovered/Not Resolved]
  - General physical health deterioration [Not Recovered/Not Resolved]

NARRATIVE: CASE EVENT DATE: 20220401
